FAERS Safety Report 6476378-4 (Version None)
Quarter: 2009Q4

REPORT INFORMATION
  Report Type: 
  Country: None (occurrence: None)
  Receive Date: 20091207
  Receipt Date: 20091124
  Transmission Date: 20100525
  Serious: Yes (Hospitalization)
  Sender: FDA-Public Use
  Company Number: US-RANBAXY-2009RR-29360

PATIENT
  Age: 45 Year
  Sex: Female
  Weight: 3.66 kg

DRUGS (1)
  1. OXCARBAZEPINE [Suspect]
     Indication: PARTIAL SEIZURES
     Dosage: UNK

REACTIONS (3)
  - BLOOD AMYLASE INCREASED [None]
  - HEPATITIS ACUTE [None]
  - LIPASE INCREASED [None]
